FAERS Safety Report 19427765 (Version 1)
Quarter: 2021Q2

REPORT INFORMATION
  Report Type: Other
  Country: US (occurrence: US)
  Receive Date: 20210616
  Receipt Date: 20210616
  Transmission Date: 20210717
  Serious: No
  Sender: FDA-Public Use
  Company Number: US-ROCHE-2630075

PATIENT
  Age: 11 Year
  Sex: Female

DRUGS (12)
  1. NOREPINEPHRINE. [Concomitant]
     Active Substance: NOREPINEPHRINE
  2. TOCILIZUMAB. [Suspect]
     Active Substance: TOCILIZUMAB
     Indication: CYTOKINE STORM
     Route: 042
  3. REMDESIVIR. [Concomitant]
     Active Substance: REMDESIVIR
  4. MILRINONE [Concomitant]
     Active Substance: MILRINONE
  5. PIPERACILLIN/TAZOBACTAM [Concomitant]
     Active Substance: PIPERACILLIN SODIUM\TAZOBACTAM SODIUM
  6. HUMAN IMMUNOGLOBULIN [Concomitant]
     Route: 042
  7. VITAMIN K [Concomitant]
     Active Substance: PHYTONADIONE
  8. ENOXAPARIN [Concomitant]
     Active Substance: ENOXAPARIN
  9. TOCILIZUMAB. [Suspect]
     Active Substance: TOCILIZUMAB
     Indication: COVID-19
  10. FUROSEMIDE. [Concomitant]
     Active Substance: FUROSEMIDE
  11. CEFTAROLINE [Concomitant]
     Active Substance: CEFTAROLINE
  12. CLINDAMYCIN. [Concomitant]
     Active Substance: CLINDAMYCIN

REACTIONS (3)
  - Off label use [Unknown]
  - Intentional product use issue [Unknown]
  - No adverse event [Unknown]
